FAERS Safety Report 9453137 (Version 1)
Quarter: 2013Q3

REPORT INFORMATION
  Report Type: Spontaneous
  Country: US (occurrence: US)
  Receive Date: 20130812
  Receipt Date: 20130812
  Transmission Date: 20140515
  Serious: Yes (Other)
  Sender: FDA-Public Use
  Company Number: PHEH2013US017037

PATIENT
  Sex: Male

DRUGS (12)
  1. TEKTURNA [Suspect]
  2. ATENOLOL [Concomitant]
     Dosage: 50 MG, BID
  3. FINASTERIDE [Concomitant]
     Dosage: 5 MG, QD
  4. GABAPENTIN [Concomitant]
     Dosage: 300 MG, TID
  5. GLIMEPIRIDE [Concomitant]
     Dosage: 4 MG, QD
  6. HYDRALAZINE [Concomitant]
     Dosage: 800 MG
  7. LASIX [Concomitant]
     Dosage: 80 MG
  8. LEVOTHYROXINE [Concomitant]
  9. MINOXIDIL [Concomitant]
     Dosage: 2.5 MG, UNK
  10. NIZATIDINE [Concomitant]
     Dosage: 150 MG, BID
  11. PERCOCET [Concomitant]
  12. SENSIPAR [Concomitant]
     Dosage: 60 MG, QD

REACTIONS (13)
  - Renal failure chronic [Unknown]
  - Hypertension [Unknown]
  - Hyperparathyroidism secondary [Unknown]
  - Asthma [Unknown]
  - Benign prostatic hyperplasia [Unknown]
  - Diabetes mellitus [Unknown]
  - Hypercholesterolaemia [Unknown]
  - Arteriovenous fistula [Unknown]
  - Nephrotic syndrome [Unknown]
  - Oedema peripheral [Unknown]
  - Anaemia [Unknown]
  - Nephrolithiasis [Unknown]
  - Gastrooesophageal reflux disease [Unknown]
